FAERS Safety Report 16072365 (Version 1)
Quarter: 2019Q1

REPORT INFORMATION
  Report Type: Spontaneous
  Country: US (occurrence: US)
  Receive Date: 20190314
  Receipt Date: 20190314
  Transmission Date: 20190418
  Serious: No
  Sender: FDA-Public Use
  Company Number: US-ALLERGAN-1822324US

PATIENT
  Age: 70 Year
  Sex: Male

DRUGS (4)
  1. MESALAMINE. [Concomitant]
     Active Substance: MESALAMINE
     Indication: COLITIS ULCERATIVE
     Dosage: 480 MG, QD
     Route: 048
  2. CANASA [Suspect]
     Active Substance: MESALAMINE
     Indication: PROCTITIS
     Dosage: 1000 MG SUPPOSITORY, BID
     Route: 054
     Dates: start: 20180417, end: 20180424
  3. HUMIRA [Concomitant]
     Active Substance: ADALIMUMAB
     Indication: COLITIS ULCERATIVE
     Dosage: 40 MG, EVERY OTHER WEEK
  4. CANASA [Suspect]
     Active Substance: MESALAMINE
     Dosage: UNK
     Route: 054

REACTIONS (3)
  - Incorrect dose administered [Unknown]
  - Anorectal discomfort [Recovered/Resolved]
  - Drug ineffective [Unknown]

NARRATIVE: CASE EVENT DATE: 201804
